FAERS Safety Report 8387882-6 (Version None)
Quarter: 2012Q2

REPORT INFORMATION
  Report Type: 
  Country: None (occurrence: None)
  Receive Date: 20120525
  Receipt Date: 20120521
  Transmission Date: 20120825
  Serious: No
  Sender: FDA-Public Use
  Company Number: US-PFIZER INC-2012123520

PATIENT
  Sex: Male
  Weight: 91 kg

DRUGS (2)
  1. METAXALONE [Suspect]
     Indication: MUSCLE SPASMS
     Dosage: 400 MG, 8X/DAY
  2. SKELAXIN [Suspect]
     Indication: MUSCLE SPASMS
     Dosage: UNK

REACTIONS (7)
  - PERIPHERAL COLDNESS [None]
  - DRUG INEFFECTIVE [None]
  - MUSCLE SPASMS [None]
  - PAIN [None]
  - SCREAMING [None]
  - INSOMNIA [None]
  - FEELING HOT [None]
